FAERS Safety Report 9217443 (Version 1)
Quarter: 2013Q2

REPORT INFORMATION
  Report Type: Spontaneous
  Country: US (occurrence: None)
  Receive Date: 20130405
  Receipt Date: 20130405
  Transmission Date: 20140414
  Serious: Yes (Hospitalization)
  Sender: FDA-Public Use
  Company Number: None

PATIENT
  Age: 62 Year
  Sex: Male
  Weight: 79.3 kg

DRUGS (1)
  1. BUPROPION [Suspect]
     Dosage: MG BID PO
     Route: 048
     Dates: start: 20121120

REACTIONS (2)
  - Presyncope [None]
  - Visual impairment [None]
